FAERS Safety Report 9238040 (Version 1)
Quarter: 2013Q2

REPORT INFORMATION
  Report Type: Spontaneous
  Country: JP (occurrence: JP)
  Receive Date: 20130418
  Receipt Date: 20130418
  Transmission Date: 20140414
  Serious: Yes (Hospitalization)
  Sender: FDA-Public Use
  Company Number: JP-B.I. PHARMACEUTICALS,INC./RIDGEFIELD-2013-BI-09948NB

PATIENT
  Age: 72 Year
  Sex: Male

DRUGS (8)
  1. PRAZAXA [Suspect]
     Indication: ATRIAL FIBRILLATION
     Dosage: 220 MG
     Route: 048
  2. XANBON [Concomitant]
     Route: 065
  3. JANUVIA [Concomitant]
     Indication: DIABETES MELLITUS
     Dosage: 50 MG
     Route: 048
  4. VOGLIBOSE [Concomitant]
     Indication: DIABETES MELLITUS
     Dosage: 0.6 MG
     Route: 048
  5. LIPOVAS [Concomitant]
     Indication: HYPERLIPIDAEMIA
     Dosage: 10 MG
     Route: 048
  6. DEPAS [Concomitant]
     Indication: INSOMNIA
     Dosage: 1 MG
     Route: 048
  7. BROTIZOLAM [Concomitant]
     Route: 065
  8. FEXOFENADINE HYDROCHLORIDE [Concomitant]
     Route: 065

REACTIONS (2)
  - Cerebral infarction [Unknown]
  - Hypertension [Unknown]
